FAERS Safety Report 23696584 (Version 1)
Quarter: 2024Q2

REPORT INFORMATION
  Report Type: Spontaneous
  Country: US (occurrence: None)
  Receive Date: 20240401
  Receipt Date: 20240401
  Transmission Date: 20240716
  Serious: No
  Sender: FDA-Public Use
  Company Number: None

PATIENT
  Age: 59 Year
  Sex: Female
  Weight: 85.5 kg

DRUGS (1)
  1. DOVATO [Suspect]
     Active Substance: DOLUTEGRAVIR SODIUM\LAMIVUDINE
     Indication: HIV infection
     Route: 048
     Dates: start: 20170602, end: 20240329

REACTIONS (6)
  - Musculoskeletal disorder [None]
  - Paraesthesia [None]
  - Victim of sexual abuse [None]
  - HIV infection [None]
  - Loss of personal independence in daily activities [None]
  - Therapy change [None]

NARRATIVE: CASE EVENT DATE: 20240301
